FAERS Safety Report 7093361-9 (Version None)
Quarter: 2010Q4

REPORT INFORMATION
  Report Type: 
  Country: None (occurrence: None)
  Receive Date: 20101110
  Receipt Date: 20101028
  Transmission Date: 20110411
  Serious: Yes (Hospitalization)
  Sender: FDA-Public Use
  Company Number: GB-JNJFOC-20101102498

PATIENT
  Age: 30 Year
  Sex: Male

DRUGS (6)
  1. METHYLPHENIDATE HCL [Suspect]
     Indication: ILL-DEFINED DISORDER
     Route: 048
  2. VENLAFAXINE [Suspect]
     Indication: ILL-DEFINED DISORDER
     Route: 065
  3. PAROXETINE HCL [Suspect]
     Indication: ILL-DEFINED DISORDER
     Route: 065
  4. IBUPROFEN [Concomitant]
     Route: 065
  5. DIAZEPAM [Concomitant]
     Route: 065
  6. ETHANOL [Concomitant]
     Route: 065

REACTIONS (1)
  - INTENTIONAL OVERDOSE [None]
